FAERS Safety Report 4508999-X (Version None)
Quarter: 2004Q4

REPORT INFORMATION
  Report Type: 
  Country: None (occurrence: None)
  Receive Date: 20041122
  Receipt Date: 20041122
  Transmission Date: 20050328
  Serious: Yes (Death)
  Sender: FDA-Public Use
  Company Number: None

PATIENT
  Sex: Male
  Weight: 60.782 kg

DRUGS (8)
  1. CISPLATIN [Suspect]
     Indication: OESOPHAGEAL SQUAMOUS CELL CARCINOMA
     Dosage: 133/354 MG D1-5/D1 IV
     Route: 042
     Dates: start: 20041011, end: 20041015
  2. FLUOROURACIL [Suspect]
     Indication: OESOPHAGEAL SQUAMOUS CELL CARCINOMA
     Dosage: 5752 MG D1-5 CI IV
     Route: 042
     Dates: start: 20041011, end: 20041015
  3. HEPARIN [Concomitant]
  4. ZOSYN [Concomitant]
  5. HYDROCORTISONE [Concomitant]
  6. PROTEIN POWDER [Concomitant]
  7. PREVACID [Concomitant]
  8. NICOTINE [Concomitant]

REACTIONS (10)
  - ACUTE RESPIRATORY DISTRESS SYNDROME [None]
  - BLOOD CULTURE POSITIVE [None]
  - BRONCHOPNEUMONIA [None]
  - FISTULA [None]
  - GENERAL PHYSICAL HEALTH DETERIORATION [None]
  - HYPOTENSION [None]
  - KLEBSIELLA INFECTION [None]
  - OESOPHAGEAL DISORDER [None]
  - RESPIRATORY DISORDER [None]
  - RESPIRATORY FAILURE [None]
